FAERS Safety Report 16994303 (Version 1)
Quarter: 2019Q4

REPORT INFORMATION
  Report Type: Spontaneous
  Country: US (occurrence: US)
  Receive Date: 20191105
  Receipt Date: 20191105
  Transmission Date: 20200122
  Serious: No
  Sender: FDA-Public Use
  Company Number: US-MYLANLABS-2019M1100319

PATIENT
  Sex: Female
  Weight: 82 kg

DRUGS (1)
  1. FENTANYL TRANSDERMAL SYSTEM [Suspect]
     Active Substance: FENTANYL
     Indication: PAIN
     Dosage: 25 MICROGRAM
     Route: 062

REACTIONS (3)
  - Product dose omission [Recovered/Resolved]
  - Therapeutic product effect delayed [Recovered/Resolved]
  - Withdrawal syndrome [Recovered/Resolved]
